FAERS Safety Report 5251952-1 (Version None)
Quarter: 2007Q1

REPORT INFORMATION
  Report Type: 
  Country: None (occurrence: None)
  Receive Date: 20070223
  Receipt Date: 20070216
  Transmission Date: 20070707
  Serious: Yes (Death, Hospitalization, Other)
  Sender: FDA-Public Use
  Company Number: 2006-01342

PATIENT
  Age: 59 Year
  Sex: Male
  Weight: 68 kg

DRUGS (2)
  1. VELCADE [Suspect]
     Indication: MULTIPLE MYELOMA
     Dosage: 1.20 MG/M2, UNK, INTRAVENOUS
     Route: 042
     Dates: start: 20051025, end: 20060210
  2. ZOFRAN [Concomitant]

REACTIONS (10)
  - ACUTE RESPIRATORY FAILURE [None]
  - ATELECTASIS [None]
  - DILATATION ATRIAL [None]
  - DILATATION VENTRICULAR [None]
  - EJECTION FRACTION ABNORMAL [None]
  - MITRAL VALVE INCOMPETENCE [None]
  - NEUTROPENIA [None]
  - SEPTIC SHOCK [None]
  - SUPRAVENTRICULAR TACHYCARDIA [None]
  - VENTRICULAR DYSFUNCTION [None]
